FAERS Safety Report 8422185-2 (Version None)
Quarter: 2012Q2

REPORT INFORMATION
  Report Type: 
  Country: None (occurrence: None)
  Receive Date: 20120608
  Receipt Date: 20120531
  Transmission Date: 20120825
  Serious: Yes (Other)
  Sender: FDA-Public Use
  Company Number: GB-EISAI INC-E3810-05605-SPO-GB

PATIENT
  Age: 63 Year
  Sex: Female
  Weight: 65 kg

DRUGS (5)
  1. RANITIDINE [Concomitant]
     Dates: start: 20120522
  2. AMOXICILLIN [Concomitant]
     Dates: start: 20120518
  3. LANSOPRAZOLE [Concomitant]
     Dates: start: 20120305, end: 20120423
  4. RABEPRAZOLE SODIUM [Suspect]
     Dosage: UNKNOWN
     Route: 048
     Dates: start: 20120518
  5. BECLOMETHASONE DIPROPIONATE [Concomitant]
     Dates: start: 20120326

REACTIONS (1)
  - DIARRHOEA [None]
